FAERS Safety Report 5476026-6 (Version None)
Quarter: 2007Q4

REPORT INFORMATION
  Report Type: 
  Country: None (occurrence: None)
  Receive Date: 20071003
  Receipt Date: 20070926
  Transmission Date: 20080405
  Serious: Yes (Hospitalization)
  Sender: FDA-Public Use
  Company Number: JP-ASTRAZENECA-2007AP01689

PATIENT
  Age: 22748 Day
  Sex: Male
  Weight: 73 kg

DRUGS (5)
  1. OMEPRAL [Suspect]
     Indication: REFLUX OESOPHAGITIS
     Route: 048
     Dates: start: 20051209, end: 20060125
  2. OMEPRAL [Suspect]
     Route: 048
     Dates: start: 20060320, end: 20060520
  3. PROTECADIN [Suspect]
     Route: 048
     Dates: start: 20060201, end: 20060319
  4. OTSUJI-TO [Suspect]
     Indication: HAEMORRHOIDS
     Dates: start: 20060301
  5. DASEN [Concomitant]
     Dates: start: 20060301

REACTIONS (1)
  - HEPATIC FUNCTION ABNORMAL [None]
